FAERS Safety Report 9442265 (Version 1)
Quarter: 2013Q3

REPORT INFORMATION
  Report Type: Spontaneous
  Country: US (occurrence: US)
  Receive Date: 20130806
  Receipt Date: 20130806
  Transmission Date: 20140515
  Serious: No
  Sender: FDA-Public Use
  Company Number: US-GLAXOSMITHKLINE-A0788594A

PATIENT
  Sex: Male

DRUGS (6)
  1. ADVAIR [Suspect]
     Indication: ASTHMA
     Dosage: 2PUFF TWICE PER DAY
     Route: 055
  2. SEREVENT [Suspect]
     Indication: ASTHMA
     Route: 055
  3. ADVAIR [Suspect]
     Indication: ASTHMA
     Route: 055
     Dates: start: 2006
  4. FLONASE [Concomitant]
     Route: 045
  5. NEXIUM [Concomitant]
  6. FLOVENT [Concomitant]
     Route: 055

REACTIONS (5)
  - Underdose [Unknown]
  - Dyspnoea [Unknown]
  - Blood pressure fluctuation [Unknown]
  - Asthma [Unknown]
  - Bronchospasm [Unknown]
